FAERS Safety Report 8519889-X (Version None)
Quarter: 2012Q3

REPORT INFORMATION
  Report Type: 
  Country: None (occurrence: None)
  Receive Date: 20120719
  Receipt Date: 20120709
  Transmission Date: 20120928
  Serious: No
  Sender: FDA-Public Use
  Company Number: US-BIOGENIDEC-2012BI021809

PATIENT
  Sex: Male

DRUGS (3)
  1. AVONEX [Suspect]
     Indication: MULTIPLE SCLEROSIS
     Route: 030
     Dates: start: 19990427
  2. AVONEX [Suspect]
     Route: 030
  3. NEURONTIN [Concomitant]
     Indication: PAIN IN EXTREMITY

REACTIONS (13)
  - COORDINATION ABNORMAL [None]
  - CONFUSIONAL STATE [None]
  - AMNESIA [None]
  - HEADACHE [None]
  - AGITATION [None]
  - TEMPERATURE INTOLERANCE [None]
  - STRESS [None]
  - INSOMNIA [None]
  - MUSCLE SPASMS [None]
  - FALL [None]
  - INJURY [None]
  - AGRAPHIA [None]
  - INJECTION SITE HAEMORRHAGE [None]
